FAERS Safety Report 7000734-9 (Version None)
Quarter: 2010Q3

REPORT INFORMATION
  Report Type: 
  Country: None (occurrence: None)
  Receive Date: 20100920
  Receipt Date: 20100323
  Transmission Date: 20110219
  Serious: No
  Sender: FDA-Public Use
  Company Number: US-ASTRAZENECA-2010SE12974

PATIENT
  Age: 430 Month
  Sex: Female
  Weight: 81.6 kg

DRUGS (2)
  1. SEROQUEL [Suspect]
     Indication: HALLUCINATION
     Route: 048
     Dates: start: 20070301, end: 20100301
  2. SEROQUEL [Suspect]
     Indication: BIPOLAR DISORDER
     Route: 048
     Dates: start: 20070301, end: 20100301

REACTIONS (5)
  - ABNORMAL DREAMS [None]
  - CRYING [None]
  - DRUG DOSE OMISSION [None]
  - IRRITABILITY [None]
  - MYALGIA [None]
